FAERS Safety Report 25511503 (Version 3)
Quarter: 2025Q4

REPORT INFORMATION
  Report Type: Report from Study
  Country: KR (occurrence: KR)
  Receive Date: 20250703
  Receipt Date: 20251001
  Transmission Date: 20260118
  Serious: Yes (Hospitalization)
  Sender: ABBVIE
  Company Number: KR-ABBVIE-6275156

PATIENT
  Age: 39 Year
  Sex: Male
  Weight: 50 kg

DRUGS (53)
  1. RINVOQ [Suspect]
     Active Substance: UPADACITINIB
     Indication: Crohn^s disease
     Route: 048
     Dates: start: 20250502, end: 20250516
  2. RINVOQ [Suspect]
     Active Substance: UPADACITINIB
     Indication: Crohn^s disease
     Route: 048
     Dates: start: 20250310, end: 20250331
  3. RINVOQ [Suspect]
     Active Substance: UPADACITINIB
     Indication: Crohn^s disease
     Route: 048
     Dates: start: 20241105, end: 20250309
  4. Almagel-f [Concomitant]
     Indication: Prophylaxis
     Route: 048
     Dates: start: 20250320, end: 20250320
  5. Almagel-f [Concomitant]
     Indication: Prophylaxis
     Route: 048
     Dates: start: 20250319, end: 20250319
  6. SODIUM CHLORIDE [Concomitant]
     Active Substance: SODIUM CHLORIDE
     Indication: Prophylaxis
     Route: 042
     Dates: start: 20250317, end: 20250402
  7. Q-zyme [Concomitant]
     Indication: Prophylaxis
     Dosage: TIME INTERVAL: 0.33333333 DAYS
     Route: 048
     Dates: start: 20250424
  8. Q-zyme [Concomitant]
     Indication: Prophylaxis
     Route: 048
     Dates: start: 20241217, end: 20250113
  9. PENTASA [Concomitant]
     Active Substance: MESALAMINE
     Indication: Crohn^s disease
     Route: 048
     Dates: start: 20200708
  10. ULTRACET [Concomitant]
     Active Substance: ACETAMINOPHEN\TRAMADOL HYDROCHLORIDE
     Indication: Prophylaxis
     Route: 048
     Dates: start: 20241218, end: 20250116
  11. ULTRACET [Concomitant]
     Active Substance: ACETAMINOPHEN\TRAMADOL HYDROCHLORIDE
     Indication: Prophylaxis
     Dosage: FREQUENCY TEXT: PRN
     Route: 048
     Dates: start: 20250317
  12. Citopcin [Concomitant]
     Indication: Crohn^s disease
     Route: 048
     Dates: start: 20241217, end: 20250113
  13. Citopcin [Concomitant]
     Indication: Crohn^s disease
     Route: 048
     Dates: start: 20250310
  14. SUPRAX [Concomitant]
     Active Substance: CEFIXIME
     Indication: Crohn^s disease
     Route: 048
     Dates: start: 20241218, end: 20250310
  15. MEPERIDINE [Concomitant]
     Active Substance: MEPERIDINE
     Indication: Sigmoidoscopy
     Route: 030
     Dates: start: 20250320, end: 20250320
  16. MEPERIDINE [Concomitant]
     Active Substance: MEPERIDINE
     Indication: Sigmoidoscopy
     Route: 030
     Dates: start: 20250324, end: 20250324
  17. Rectogesic [Concomitant]
     Indication: Crohn^s disease
     Dosage: TIME INTERVAL: 0.33333333 DAYS
     Route: 048
     Dates: start: 20241217
  18. ULTRACET [Concomitant]
     Active Substance: ACETAMINOPHEN\TRAMADOL HYDROCHLORIDE
     Indication: Prophylaxis
     Route: 048
     Dates: start: 20241211, end: 20241217
  19. Encover [Concomitant]
     Indication: Prophylaxis
     Route: 048
     Dates: start: 20250328, end: 20250330
  20. Encover [Concomitant]
     Indication: Prophylaxis
     Route: 048
     Dates: start: 20250418, end: 20250501
  21. Bearoban [Concomitant]
     Indication: Crohn^s disease
     Route: 061
     Dates: start: 20250424
  22. TEGOPRAZAN [Concomitant]
     Active Substance: TEGOPRAZAN
     Indication: Prophylaxis
     Route: 048
     Dates: start: 20250321
  23. GLYCERIN [Concomitant]
     Active Substance: GLYCERIN
     Indication: Sigmoidoscopy
     Route: 061
     Dates: start: 20250324, end: 20250324
  24. GLYCERIN [Concomitant]
     Active Substance: GLYCERIN
     Indication: Sigmoidoscopy
     Route: 061
     Dates: start: 20250320, end: 20250320
  25. GLYCERIN [Concomitant]
     Active Substance: GLYCERIN
     Indication: Sigmoidoscopy
     Route: 061
     Dates: start: 20250415, end: 20250415
  26. Venoferrum [Concomitant]
     Indication: Iron deficiency anaemia
     Route: 042
     Dates: start: 20241218, end: 20241218
  27. Venoferrum [Concomitant]
     Indication: Iron deficiency anaemia
     Route: 042
     Dates: start: 20241119, end: 20241119
  28. Venoferrum [Concomitant]
     Indication: Iron deficiency anaemia
     Route: 042
     Dates: start: 20241105, end: 20241105
  29. Venoferrum [Concomitant]
     Indication: Iron deficiency anaemia
     Route: 042
     Dates: start: 20250210, end: 20250210
  30. Venoferrum [Concomitant]
     Indication: Iron deficiency anaemia
     Route: 042
     Dates: start: 20250424, end: 20250424
  31. Venoferrum [Concomitant]
     Indication: Iron deficiency anaemia
     Route: 042
     Dates: start: 20250502, end: 20250502
  32. Venoferrum [Concomitant]
     Indication: Iron deficiency anaemia
     Route: 042
     Dates: start: 20250605, end: 20250605
  33. TRANEXAMIC ACID [Concomitant]
     Active Substance: TRANEXAMIC ACID
     Indication: Prophylaxis
     Dosage: TIME INTERVAL: 0.33333333 DAYS
     Route: 048
     Dates: start: 20250401, end: 20250501
  34. FERINJECT [Concomitant]
     Active Substance: FERRIC CARBOXYMALTOSE
     Indication: Anaemia
     Dosage: UNIT DOSE : 2 VIAL
     Route: 042
     Dates: start: 20241216, end: 20241216
  35. Profa [Concomitant]
     Indication: Prophylaxis
     Route: 042
     Dates: start: 20250403, end: 20250403
  36. Profa [Concomitant]
     Indication: Prophylaxis
     Route: 042
     Dates: start: 20250401, end: 20250401
  37. Combiflex peri [Concomitant]
     Indication: Prophylaxis
     Route: 042
     Dates: start: 20250317, end: 20250403
  38. Perid [Concomitant]
     Indication: Prophylaxis
     Route: 042
     Dates: start: 20250404, end: 20250418
  39. TANTUM [Concomitant]
     Active Substance: BENZYDAMINE HYDROCHLORIDE
     Indication: Prophylaxis
     Dosage: TIME INTERVAL: AS NECESSARY: FREQUENCY TEXT: PRN
     Route: 061
     Dates: start: 20250413, end: 20250417
  40. VITAMINS [Concomitant]
     Active Substance: VITAMINS
     Indication: Prophylaxis
     Route: 042
     Dates: start: 20250317, end: 20250419
  41. CALCIUM CARBONATE\CHOLECALCIFEROL [Concomitant]
     Active Substance: CALCIUM CARBONATE\CHOLECALCIFEROL
     Indication: Prophylaxis
     Route: 048
     Dates: start: 20231106, end: 20250116
  42. CALCIUM CARBONATE\CHOLECALCIFEROL [Concomitant]
     Active Substance: CALCIUM CARBONATE\CHOLECALCIFEROL
     Indication: Prophylaxis
     Route: 048
     Dates: start: 20250310
  43. Omapplusone peri [Concomitant]
     Indication: Prophylaxis
     Route: 042
     Dates: start: 20250404, end: 20250418
  44. Omnihexol [Concomitant]
     Indication: Prophylaxis
     Route: 042
     Dates: start: 20241216, end: 20241216
  45. Thiamine inj 100mg [Concomitant]
     Indication: Prophylaxis
     Route: 042
     Dates: start: 20250404, end: 20250419
  46. SODIUM CHLORIDE [Concomitant]
     Active Substance: SODIUM CHLORIDE
     Indication: Iron deficiency anaemia
     Route: 042
     Dates: start: 20241218, end: 20241218
  47. SODIUM CHLORIDE [Concomitant]
     Active Substance: SODIUM CHLORIDE
     Indication: Iron deficiency anaemia
     Route: 042
     Dates: start: 20250210, end: 20250210
  48. SODIUM CHLORIDE [Concomitant]
     Active Substance: SODIUM CHLORIDE
     Indication: Iron deficiency anaemia
     Route: 042
     Dates: start: 20241119, end: 20241119
  49. SODIUM CHLORIDE [Concomitant]
     Active Substance: SODIUM CHLORIDE
     Indication: Iron deficiency anaemia
     Route: 042
     Dates: start: 20241105, end: 20241105
  50. Bioflor [Concomitant]
     Indication: Prophylaxis
     Dosage: UNIT DOSE : 1 OTHER(PACK)
     Route: 048
     Dates: start: 20230109, end: 20241119
  51. Magmil S [Concomitant]
     Indication: Prophylaxis
     Dosage: TIME INTERVAL: 0.33333333 DAYS
     Route: 048
     Dates: start: 20250616
  52. ASACOL [Concomitant]
     Active Substance: MESALAMINE
     Indication: Crohn^s disease
     Dosage: UNIT DOSE : 1 OTHER(SUPPO)
     Route: 054
     Dates: start: 20250519
  53. ASACOL [Concomitant]
     Active Substance: MESALAMINE
     Indication: Crohn^s disease
     Dosage: UNIT DOSE : 1 OTHER(SUPPO)
     Route: 054
     Dates: start: 20250519

REACTIONS (10)
  - Anaemia [Recovered/Resolved]
  - Pyrexia [Recovered/Resolved with Sequelae]
  - Proctalgia [Recovered/Resolved]
  - C-reactive protein increased [Recovering/Resolving]
  - Proctalgia [Recovered/Resolved]
  - Urticaria [Recovered/Resolved]
  - Hypophosphataemia [Recovering/Resolving]
  - Intentional product misuse [Recovered/Resolved]
  - Pelvic abscess [Recovering/Resolving]
  - Anal abscess [Recovering/Resolving]

NARRATIVE: CASE EVENT DATE: 20250310
